FAERS Safety Report 9447905 (Version 1)
Quarter: 2013Q3

REPORT INFORMATION
  Report Type: Spontaneous
  Country: FR (occurrence: FR)
  Receive Date: 20130808
  Receipt Date: 20130808
  Transmission Date: 20140515
  Serious: No
  Sender: FDA-Public Use
  Company Number: PHHY2013FR085199

PATIENT
  Age: 32 Year
  Sex: Male
  Weight: 92 kg

DRUGS (2)
  1. TASIGNA [Suspect]
     Indication: CHRONIC MYELOID LEUKAEMIA
     Dosage: 400 MG, BID
     Route: 048
     Dates: start: 201201
  2. CORTISONE [Suspect]
     Indication: RASH
     Route: 003
     Dates: end: 20130802

REACTIONS (6)
  - Body fat disorder [Not Recovered/Not Resolved]
  - Fat tissue increased [Not Recovered/Not Resolved]
  - Muscle hypertrophy [Not Recovered/Not Resolved]
  - Fatigue [Unknown]
  - Musculoskeletal pain [Unknown]
  - Weight increased [Unknown]
